FAERS Safety Report 9761028 (Version 2)
Quarter: 2013Q4

REPORT INFORMATION
  Report Type: Spontaneous
  Country: CA (occurrence: CA)
  Receive Date: 20131216
  Receipt Date: 20131227
  Transmission Date: 20140711
  Serious: Yes (Other)
  Sender: FDA-Public Use
  Company Number: CA-AMGEN-CANSP2013087082

PATIENT
  Age: 69 Year
  Sex: Female

DRUGS (7)
  1. PROLIA [Suspect]
     Indication: OSTEOPOROSIS POSTMENOPAUSAL
     Dosage: 60 MG/ML, Q6MO
     Route: 058
     Dates: start: 201305
  2. SYMBICORT [Concomitant]
  3. TYLENOL WITH CODEIN #3 [Concomitant]
  4. SPIRIVA [Concomitant]
  5. TRAZODONE [Concomitant]
  6. NEURALIN [Concomitant]
  7. TECTA [Concomitant]

REACTIONS (3)
  - Sepsis [Unknown]
  - Localised infection [Unknown]
  - Laceration [Unknown]
